FAERS Safety Report 6497626-0 (Version None)
Quarter: 2009Q4

REPORT INFORMATION
  Report Type: 
  Country: None (occurrence: None)
  Receive Date: 20091215
  Receipt Date: 20091208
  Transmission Date: 20100525
  Serious: Yes (Death)
  Sender: FDA-Public Use
  Company Number: SI-ROCHE-668332

PATIENT
  Sex: Male

DRUGS (1)
  1. XELODA [Suspect]
     Dosage: FREQUENCY: EVERY 12 HOURS.
     Route: 048
     Dates: start: 20091021, end: 20091026

REACTIONS (1)
  - MYOCARDIAL INFARCTION [None]
